FAERS Safety Report 23415385 (Version 1)
Quarter: 2024Q1

REPORT INFORMATION
  Report Type: Spontaneous
  Country: US (occurrence: US)
  Receive Date: 20240118
  Receipt Date: 20240118
  Transmission Date: 20240410
  Serious: Yes (Life-Threatening, Hospitalization, Other)
  Sender: FDA-Public Use
  Company Number: US-BRISTOL-MYERS SQUIBB COMPANY-2024-007021

PATIENT
  Sex: Female

DRUGS (4)
  1. SPRYCEL [Suspect]
     Active Substance: DASATINIB
     Indication: Product used for unknown indication
  2. BLINCYTO [Suspect]
     Active Substance: BLINATUMOMAB
     Indication: Acute lymphocytic leukaemia
  3. BLINCYTO [Suspect]
     Active Substance: BLINATUMOMAB
  4. BLINCYTO [Suspect]
     Active Substance: BLINATUMOMAB
     Dosage: GIVEN A 7-DAY PUMP AND ONLY NEEDED 2 DAYS TO FINISH HER 28 DAY CYCLE, UNKNOWN

REACTIONS (3)
  - Deep vein thrombosis [Unknown]
  - Hypervolaemia [Unknown]
  - Nervous system disorder [Unknown]
